FAERS Safety Report 6118869-1 (Version None)
Quarter: 2009Q1

REPORT INFORMATION
  Report Type: 
  Country: None (occurrence: None)
  Receive Date: 20090316
  Receipt Date: 20090304
  Transmission Date: 20090719
  Serious: Yes (Hospitalization, Other)
  Sender: FDA-Public Use
  Company Number: PHHY2009BR08138

PATIENT
  Sex: Female
  Weight: 72 kg

DRUGS (3)
  1. PARLODEL [Suspect]
     Indication: ADENOMA BENIGN
     Dosage: 6 TABLETS A DAY
     Route: 048
     Dates: start: 19870101
  2. PARLODEL [Suspect]
     Dosage: 1 TABLET OF PARLODEL
     Route: 048
     Dates: start: 19990101
  3. ANESTHETICS, GENERAL [Concomitant]

REACTIONS (8)
  - FALLOPIAN TUBE OPERATION [None]
  - GENITAL DISORDER FEMALE [None]
  - HYPOTHYROIDISM [None]
  - JAW DISORDER [None]
  - JAW OPERATION [None]
  - MEDICAL DIET [None]
  - OOPHORECTOMY [None]
  - WEIGHT DECREASED [None]
